FAERS Safety Report 4316476-4 (Version None)
Quarter: 2004Q1

REPORT INFORMATION
  Report Type: 
  Country: None (occurrence: None)
  Receive Date: 20040311
  Receipt Date: 20040302
  Transmission Date: 20041129
  Serious: Yes (Hospitalization)
  Sender: FDA-Public Use
  Company Number: FR-JNJFOC-20040300699

PATIENT
  Age: 75 Year
  Sex: Male
  Weight: 80 kg

DRUGS (2)
  1. RISPERDAL [Suspect]
     Dosage: 1 DOSE (S),IN 1 DAY,ORAL
     Route: 048
     Dates: end: 20040128
  2. NOCTRAN  (NOCTAN 10) TABLETS [Concomitant]

REACTIONS (4)
  - GYNAECOMASTIA [None]
  - HYPERPROLACTINAEMIA [None]
  - PARKINSON'S DISEASE [None]
  - VENTRICULAR TACHYCARDIA [None]
